FAERS Safety Report 15001513 (Version 1)
Quarter: 2018Q2

REPORT INFORMATION
  Report Type: Spontaneous
  Country: US (occurrence: US)
  Receive Date: 20180524
  Receipt Date: 20180524
  Transmission Date: 20180711
  Serious: Yes (Other)
  Sender: FDA-Public Use
  Company Number: None

PATIENT
  Age: 51 Year
  Sex: Female

DRUGS (4)
  1. ZIJA SMARTMIX [Concomitant]
  2. VITAMIN D [Concomitant]
     Active Substance: CHOLECALCIFEROL
  3. KLONOPIN [Suspect]
     Active Substance: CLONAZEPAM
     Indication: INSOMNIA
     Dates: start: 20060307, end: 20130404
  4. KLONOPIN [Suspect]
     Active Substance: CLONAZEPAM
     Indication: ANXIETY
     Dates: start: 20060307, end: 20130404

REACTIONS (17)
  - Malaise [None]
  - Gastric disorder [None]
  - Housebound [None]
  - Somnolence [None]
  - Muscle disorder [None]
  - Bladder disorder [None]
  - Withdrawal syndrome [None]
  - Thyroid disorder [None]
  - Dry mouth [None]
  - Hyperaesthesia [None]
  - Functional gastrointestinal disorder [None]
  - Affective disorder [None]
  - Influenza like illness [None]
  - Tinnitus [None]
  - Ear discomfort [None]
  - Blood cholesterol abnormal [None]
  - Asocial behaviour [None]

NARRATIVE: CASE EVENT DATE: 20130101
